FAERS Safety Report 4653387-9 (Version None)
Quarter: 2005Q2

REPORT INFORMATION
  Report Type: 
  Country: None (occurrence: None)
  Receive Date: 20050503
  Receipt Date: 20050421
  Transmission Date: 20051028
  Serious: Yes (Hospitalization)
  Sender: FDA-Public Use
  Company Number: 200510421BVD

PATIENT
  Age: 28 Year
  Sex: Male
  Weight: 76 kg

DRUGS (7)
  1. AVALOX (MOXIFLOXACIN HYDROCHLORIDE) [Suspect]
     Indication: PNEUMONIA
     Dosage: 400 MG, TOTAL DAILY, ORAL
     Route: 048
     Dates: start: 20050204, end: 20050214
  2. SANDIMMUNE [Suspect]
     Dosage: SEE IMAGE
     Route: 048
     Dates: end: 20050214
  3. CELLCEPT [Concomitant]
  4. BELOC [Concomitant]
  5. CAPTOPRIL [Concomitant]
  6. CATAPRES [Concomitant]
  7. DOXAZOSIN [Concomitant]

REACTIONS (6)
  - BLOOD CREATININE INCREASED [None]
  - DEHYDRATION [None]
  - DRUG LEVEL INCREASED [None]
  - FLUID INTAKE REDUCED [None]
  - GINGIVAL DISORDER [None]
  - RENAL IMPAIRMENT [None]
